FAERS Safety Report 4637642-4 (Version None)
Quarter: 2005Q2

REPORT INFORMATION
  Report Type: 
  Country: None (occurrence: None)
  Receive Date: 20050418
  Receipt Date: 20050404
  Transmission Date: 20051028
  Serious: Yes (Hospitalization)
  Sender: FDA-Public Use
  Company Number: US-GLAXOSMITHKLINE-B0376785A

PATIENT
  Age: 46 Year
  Sex: Male

DRUGS (11)
  1. LITHIUM [Suspect]
     Indication: HYPOMANIA
     Route: 065
     Dates: start: 20040209, end: 20041026
  2. LISINOPRIL [Suspect]
     Dosage: 20MG PER DAY
     Route: 065
     Dates: start: 20040810, end: 20041026
  3. FOSINOPRIL [Concomitant]
     Dosage: 20MG IN THE MORNING
     Dates: end: 20040810
  4. HALOPERIDOL [Concomitant]
     Dosage: 10MG TWICE PER DAY
  5. BENZTROPINE MESYLATE [Concomitant]
     Dosage: 1MG TWICE PER DAY
  6. OLANZAPINE [Concomitant]
     Dosage: 20MG AT NIGHT
  7. CLONAZEPAM [Concomitant]
     Dosage: 1MG TWICE PER DAY
  8. DIVALPROEX SODIUM [Concomitant]
     Dosage: 1250MG PER DAY
  9. SIMVASTATIN [Concomitant]
     Dosage: 10MG AT NIGHT
  10. ATENOLOL [Concomitant]
     Dosage: 100MG IN THE MORNING
     Dates: end: 20041029
  11. VALPROATE SODIUM [Concomitant]

REACTIONS (7)
  - BRADYCARDIA [None]
  - DRUG INTERACTION [None]
  - DRUG LEVEL BELOW THERAPEUTIC [None]
  - SALIVARY HYPERSECRETION [None]
  - SEDATION [None]
  - THERAPEUTIC AGENT TOXICITY [None]
  - TREMOR [None]
